FAERS Safety Report 7573462-9 (Version None)
Quarter: 2011Q2

REPORT INFORMATION
  Report Type: 
  Country: None (occurrence: None)
  Receive Date: 20110621
  Receipt Date: 20110613
  Transmission Date: 20111010
  Serious: Yes (Hospitalization)
  Sender: FDA-Public Use
  Company Number: 2011PL000081

PATIENT
  Age: 74 Year
  Sex: Female

DRUGS (1)
  1. HELIDAC [Suspect]
     Indication: HELICOBACTER INFECTION
     Dosage: 1 CARD, QID, PO
     Route: 048
     Dates: start: 20110523, end: 20110528

REACTIONS (5)
  - FAECES DISCOLOURED [None]
  - ENTEROCOLITIS [None]
  - CHOLECYSTITIS [None]
  - CLOSTRIDIAL INFECTION [None]
  - HEADACHE [None]
